FAERS Safety Report 10361172 (Version 6)
Quarter: 2015Q1

REPORT INFORMATION
  Report Type: Report from Study
  Country: BR (occurrence: BR)
  Receive Date: 20140804
  Receipt Date: 20150325
  Transmission Date: 20150720
  Serious: Yes (Other)
  Sender: FDA-Public Use
  Company Number: PHHY2014BR074845

PATIENT
  Age: 79 Year
  Sex: Female
  Weight: 48 kg

DRUGS (7)
  1. ACLASTA [Suspect]
     Active Substance: ZOLEDRONIC ACID
     Dosage: 5MG/100 ML, ANNUALLY
     Route: 062
     Dates: start: 2013
  2. VITAMIN E [Concomitant]
     Active Substance: .ALPHA.-TOCOPHEROL
     Indication: OSTEOPOROSIS
     Dosage: UNK UKN, BID
     Route: 048
  3. ACLASTA [Suspect]
     Active Substance: ZOLEDRONIC ACID
     Indication: OSTEOPOROSIS
     Dosage: 5MG/100 ML, ANNUALLY
     Route: 062
     Dates: start: 2011
  4. ACLASTA [Suspect]
     Active Substance: ZOLEDRONIC ACID
     Dosage: 5MG/100 ML, ANNUALLY
     Route: 062
     Dates: start: 2012
  5. CALCIUM [Concomitant]
     Active Substance: CALCIUM
     Indication: OSTEOPOROSIS
     Dosage: 1 DF, DAILY
  6. CALCIUM [Concomitant]
     Active Substance: CALCIUM
     Dosage: UNK UKN, BID
     Route: 048
  7. CHONDROITIN GLUCOSAMIN [Concomitant]
     Active Substance: CHONDROITIN SULFATE A\GLUCOSAMINE
     Indication: CHONDROPATHY
     Dosage: 1 DF, DAILY
     Dates: start: 2009

REACTIONS (11)
  - Bursitis [Not Recovered/Not Resolved]
  - Osteoarthritis [Not Recovered/Not Resolved]
  - Spinal osteoarthritis [Not Recovered/Not Resolved]
  - Limb injury [Unknown]
  - General physical health deterioration [Unknown]
  - Foot deformity [Unknown]
  - Concomitant disease progression [Not Recovered/Not Resolved]
  - Incorrect route of drug administration [Unknown]
  - Fear [Unknown]
  - Anxiety [Unknown]
  - Drug ineffective [Not Recovered/Not Resolved]

NARRATIVE: CASE EVENT DATE: 201305
